FAERS Safety Report 21659138 (Version 1)
Quarter: 2022Q4

REPORT INFORMATION
  Report Type: Spontaneous
  Country: FR (occurrence: FR)
  Receive Date: 20221129
  Receipt Date: 20221129
  Transmission Date: 20230113
  Serious: Yes (Hospitalization)
  Sender: FDA-Public Use
  Company Number: FR-JAZZ-2022-FR-036370

PATIENT
  Age: 89 Year
  Sex: Female
  Weight: 50 kg

DRUGS (3)
  1. EPIDIOLEX [Suspect]
     Active Substance: CANNABIDIOL
     Indication: Anxiety
     Dosage: 1 DROP
     Route: 048
     Dates: start: 20220901, end: 20221107
  2. BCG VACCINE [Suspect]
     Active Substance: BCG VACCINE
     Indication: Bladder transitional cell carcinoma
     Dosage: 1 DOSAGE FORM, QW
     Route: 043
     Dates: start: 20220601, end: 202208
  3. BCG VACCINE [Suspect]
     Active Substance: BCG VACCINE
     Dosage: 1 DOSAGE FORM, QW
     Route: 043
     Dates: start: 202209

REACTIONS (3)
  - Peripheral ischaemia [Not Recovered/Not Resolved]
  - Condition aggravated [Not Recovered/Not Resolved]
  - Off label use [Unknown]

NARRATIVE: CASE EVENT DATE: 20221101
